FAERS Safety Report 9712388 (Version 1)
Quarter: 2013Q4

REPORT INFORMATION
  Report Type: Spontaneous
  Country: US (occurrence: US)
  Receive Date: 20131126
  Receipt Date: 20131126
  Transmission Date: 20140711
  Serious: No
  Sender: FDA-Public Use
  Company Number: US-BRISTOL-MYERS SQUIBB COMPANY-18868539

PATIENT
  Age: 79 Year
  Sex: Female
  Weight: 87.07 kg

DRUGS (2)
  1. BYDUREON [Suspect]
     Indication: TYPE 2 DIABETES MELLITUS
     Route: 058
  2. METFORMIN [Suspect]

REACTIONS (3)
  - Injection site haemorrhage [Recovered/Resolved]
  - Injection site extravasation [Recovered/Resolved]
  - Blood glucose decreased [Unknown]
